FAERS Safety Report 24602853 (Version 1)
Quarter: 2024Q4

REPORT INFORMATION
  Report Type: Other
  Country: TH (occurrence: TH)
  Receive Date: 20241111
  Receipt Date: 20241111
  Transmission Date: 20250115
  Serious: Yes (Death, Hospitalization)
  Sender: ANI
  Company Number: TH-ANIPHARMA-012762

PATIENT
  Age: 4 Year
  Sex: Female

DRUGS (8)
  1. CLARITHROMYCIN [Suspect]
     Active Substance: CLARITHROMYCIN
     Indication: Disseminated mycobacterium avium complex infection
  2. OMEPRAZOLE [Concomitant]
     Active Substance: OMEPRAZOLE
     Indication: Helicobacter infection
  3. AMOXICILLIN [Concomitant]
     Active Substance: AMOXICILLIN
     Indication: Helicobacter infection
  4. RIFAMPIN [Concomitant]
     Active Substance: RIFAMPIN
     Indication: Disseminated mycobacterium avium complex infection
  5. ETHAMBUTOL [Concomitant]
     Active Substance: ETHAMBUTOL HYDROCHLORIDE
     Indication: Disseminated mycobacterium avium complex infection
  6. AMIKACIN [Concomitant]
     Active Substance: AMIKACIN
     Indication: Disseminated mycobacterium avium complex infection
  7. CLOFAZIMINE [Concomitant]
     Active Substance: CLOFAZIMINE
     Indication: Disseminated mycobacterium avium complex infection
  8. CLARITHROMYCIN [Suspect]
     Active Substance: CLARITHROMYCIN
     Indication: Helicobacter infection

REACTIONS (2)
  - Drug ineffective [Fatal]
  - Drug resistance [Fatal]
